FAERS Safety Report 20824114 (Version 4)
Quarter: 2022Q3

REPORT INFORMATION
  Report Type: Report from Study
  Country: US (occurrence: US)
  Receive Date: 20220513
  Receipt Date: 20220922
  Transmission Date: 20221027
  Serious: Yes (Other)
  Sender: FDA-Public Use
  Company Number: US-UCBSA-2022026043

PATIENT
  Sex: Female

DRUGS (2)
  1. CERTOLIZUMAB PEGOL [Suspect]
     Active Substance: CERTOLIZUMAB PEGOL
     Indication: Rheumatoid arthritis
     Dosage: 400 MILLIGRAM, EV 2 WEEKS(QOW)
     Route: 058
     Dates: start: 20220405, end: 2022
  2. CERTOLIZUMAB PEGOL [Suspect]
     Active Substance: CERTOLIZUMAB PEGOL
     Dosage: 400 MILLIGRAM
     Route: 058
     Dates: start: 2022

REACTIONS (10)
  - Syncope [Recovered/Resolved]
  - Oropharyngeal pain [Recovered/Resolved]
  - Rhinorrhoea [Recovered/Resolved]
  - Ear discomfort [Recovered/Resolved]
  - Hypersensitivity [Recovered/Resolved]
  - Fatigue [Recovering/Resolving]
  - Pain [Recovering/Resolving]
  - Sinusitis [Recovering/Resolving]
  - Palpitations [Recovering/Resolving]
  - Drug ineffective [Unknown]

NARRATIVE: CASE EVENT DATE: 20220101
